FAERS Safety Report 25966015 (Version 1)
Quarter: 2025Q4

REPORT INFORMATION
  Report Type: Spontaneous
  Country: EU (occurrence: EU)
  Receive Date: 20251028
  Receipt Date: 20251028
  Transmission Date: 20260118
  Serious: Yes (Other)
  Sender: BOEHRINGER INGELHEIM
  Company Number: EU-BoehringerIngelheim-2025-BI-102534

PATIENT
  Age: 65 Year
  Sex: Female

DRUGS (12)
  1. NINTEDANIB [Suspect]
     Active Substance: NINTEDANIB
     Indication: Dyspnoea
  2. PREDNISONE [Concomitant]
     Active Substance: PREDNISONE
     Indication: Product used for unknown indication
  3. PREDNISONE [Concomitant]
     Active Substance: PREDNISONE
     Dates: start: 202309
  4. PREDNISONE [Concomitant]
     Active Substance: PREDNISONE
     Dosage: DOSE: 15
  5. PREDNISONE [Concomitant]
     Active Substance: PREDNISONE
     Dosage: LOWER PREDNISONE
     Dates: start: 202311, end: 202405
  6. ABATACEPT [Concomitant]
     Active Substance: ABATACEPT
     Indication: Product used for unknown indication
     Dosage: ABATACEPT 125 SC?DOSE: 125
     Dates: start: 202306, end: 202310
  7. ABATACEPT [Concomitant]
     Active Substance: ABATACEPT
     Dosage: N8 3 WEEKS
  8. Bolus MTP [Concomitant]
     Indication: Product used for unknown indication
     Dosage: THREE BOLUS
  9. LEFLUNOMIDE [Concomitant]
     Active Substance: LEFLUNOMIDE
     Indication: Product used for unknown indication
     Dosage: LEFLUNOMIDE 20 MG/DAY
     Dates: start: 202310
  10. LEFLUNOMIDE [Concomitant]
     Active Substance: LEFLUNOMIDE
     Dosage: LOWER LFN 10?DOSE: 10
     Dates: start: 202311, end: 202401
  11. ENALAPRIL [Concomitant]
     Active Substance: ENALAPRIL
     Indication: Product used for unknown indication
  12. HYDROCHLOROTHIAZIDE [Concomitant]
     Active Substance: HYDROCHLOROTHIAZIDE
     Indication: Product used for unknown indication

REACTIONS (5)
  - Dyspnoea [Unknown]
  - Biopsy liver [Recovered/Resolved]
  - Hepatic steatosis [Unknown]
  - Transaminases increased [Unknown]
  - Dizziness [Unknown]

NARRATIVE: CASE EVENT DATE: 20231101
